FAERS Safety Report 9010956 (Version 1)
Quarter: 2013Q1

REPORT INFORMATION
  Report Type: Spontaneous
  Country: GB (occurrence: GB)
  Receive Date: 20130111
  Receipt Date: 20130111
  Transmission Date: 20140127
  Serious: Yes (Death, Hospitalization)
  Sender: FDA-Public Use
  Company Number: PHFR2013GB000509

PATIENT
  Age: 48 Year
  Sex: Male

DRUGS (1)
  1. CLOZARIL [Suspect]
     Indication: SCHIZOPHRENIA
     Dates: start: 20010701

REACTIONS (5)
  - Myocardial infarction [Fatal]
  - Cardiac arrest [Fatal]
  - Heart rate increased [Unknown]
  - White blood cell count increased [Unknown]
  - Neutrophil count increased [Unknown]
